FAERS Safety Report 19655105 (Version 1)
Quarter: 2021Q3

REPORT INFORMATION
  Report Type: Spontaneous
  Country: US (occurrence: US)
  Receive Date: 20210803
  Receipt Date: 20210803
  Transmission Date: 20211014
  Serious: No
  Sender: FDA-Public Use
  Company Number: None

PATIENT
  Age: 40 Year
  Sex: Female

DRUGS (1)
  1. GLATIRAMER PFS PFS 40GM/ML [Suspect]
     Active Substance: GLATIRAMER
     Dosage: ?          OTHER FREQUENCY:OTHER;?
     Route: 058
     Dates: start: 201604

REACTIONS (3)
  - Dehydration [None]
  - Deep vein thrombosis [None]
  - Salmonellosis [None]

NARRATIVE: CASE EVENT DATE: 20210720
